FAERS Safety Report 9303770 (Version 3)
Quarter: 2014Q1

REPORT INFORMATION
  Report Type: Spontaneous
  Country: US (occurrence: US)
  Receive Date: 20130522
  Receipt Date: 20140116
  Transmission Date: 20141002
  Serious: Yes (Other)
  Sender: FDA-Public Use
  Company Number: US-ASTRAZENECA-2013SE34012

PATIENT
  Age: 81 Year
  Sex: Male
  Weight: 77.1 kg

DRUGS (15)
  1. BICALUTAMIDE [Suspect]
     Indication: PROSTATE CANCER
     Route: 048
  2. PULMICORT FLEXHALER [Suspect]
     Indication: ASTHMA
     Dosage: 180 MCG 1 PUFF DAILY
     Route: 055
  3. PULMICORT FLEXHALER [Suspect]
     Indication: ASTHMA
     Dosage: TOOK SECOND UNPRESCIBED EXTRA DOSE
     Route: 055
     Dates: start: 20130512
  4. NEXIUM [Suspect]
     Indication: GASTROOESOPHAGEAL REFLUX DISEASE
     Route: 048
     Dates: start: 20130420
  5. PRILOSEC [Suspect]
     Indication: GASTROOESOPHAGEAL REFLUX DISEASE
     Route: 048
  6. PRILOSEC OTC [Suspect]
     Indication: GASTROOESOPHAGEAL REFLUX DISEASE
     Route: 048
  7. SEREVENT [Concomitant]
     Indication: ASTHMA
     Route: 055
  8. MAXAIR [Concomitant]
     Indication: PROPHYLAXIS
     Dosage: PRN
     Route: 055
  9. MAXAIR [Concomitant]
     Indication: PROPHYLAXIS
     Dosage: AT LEAST ONCE DAILY
     Route: 055
  10. AVODART [Concomitant]
     Indication: PROSTATE CANCER
     Route: 048
     Dates: start: 2001
  11. LOVASTATIN [Concomitant]
     Indication: BLOOD CHOLESTEROL INCREASED
     Route: 048
  12. ZOLPIDEM [Concomitant]
     Indication: INSOMNIA
     Route: 048
  13. CALTRATE [Concomitant]
  14. VITAMIN D [Concomitant]
  15. VITAMIN C [Concomitant]

REACTIONS (19)
  - Malignant neoplasm progression [Unknown]
  - Dyspnoea [Unknown]
  - Oesophageal stenosis [Unknown]
  - Oesophageal mucosa erythema [Unknown]
  - Cold sweat [Unknown]
  - Body height decreased [Unknown]
  - High density lipoprotein increased [Unknown]
  - Oesophageal food impaction [Unknown]
  - Syncope [Unknown]
  - Fall [Unknown]
  - Head injury [Unknown]
  - Oesophageal dilatation [Unknown]
  - Nervousness [Unknown]
  - Insomnia [Unknown]
  - Cough [Unknown]
  - Off label use [Unknown]
  - Intentional drug misuse [Unknown]
  - Drug ineffective [Unknown]
  - Drug dose omission [Unknown]
